FAERS Safety Report 5824012-6 (Version None)
Quarter: 2008Q3

REPORT INFORMATION
  Report Type: 
  Country: None (occurrence: None)
  Receive Date: 20080728
  Receipt Date: 20080715
  Transmission Date: 20090109
  Serious: Yes (Other)
  Sender: FDA-Public Use
  Company Number: GB-JNJFOC-20080704628

PATIENT
  Sex: Female

DRUGS (2)
  1. RISPERDAL CONSTA [Suspect]
     Indication: PSYCHOTIC DISORDER
     Route: 030
  2. ESCITALOPRAM [Concomitant]
     Route: 065

REACTIONS (3)
  - DEPRESSION [None]
  - INCONTINENCE [None]
  - PSYCHOMOTOR RETARDATION [None]
